FAERS Safety Report 19447510 (Version 1)
Quarter: 2021Q2

REPORT INFORMATION
  Report Type: Spontaneous
  Country: US (occurrence: US)
  Receive Date: 20210621
  Receipt Date: 20210621
  Transmission Date: 20210717
  Serious: No
  Sender: FDA-Public Use
  Company Number: None

PATIENT
  Age: 65 Year
  Sex: Male

DRUGS (1)
  1. GABAPENTIN. [Suspect]
     Active Substance: GABAPENTIN
     Indication: NEURALGIA
     Dosage: ?          OTHER FREQUENCY:EVERY FOUR HOURS;?
     Route: 048

REACTIONS (2)
  - Chronic kidney disease [None]
  - Contraindicated product prescribed [None]

NARRATIVE: CASE EVENT DATE: 20201010
